FAERS Safety Report 25805186 (Version 1)
Quarter: 2025Q3

REPORT INFORMATION
  Report Type: Report from Study
  Country: US (occurrence: US)
  Receive Date: 20250916
  Receipt Date: 20250916
  Transmission Date: 20251021
  Serious: Yes (Hospitalization, Other)
  Sender: ROCHE
  Company Number: US-ROCHE-10000218195

PATIENT
  Age: 85 Year
  Sex: Male

DRUGS (19)
  1. ESBRIET [Suspect]
     Active Substance: PIRFENIDONE
     Indication: Pulmonary fibrosis
     Route: 048
     Dates: start: 202301
  2. ESBRIET [Suspect]
     Active Substance: PIRFENIDONE
     Route: 048
     Dates: start: 202301
  3. ELIQUIS [Concomitant]
     Active Substance: APIXABAN
  4. LIPITOR [Concomitant]
     Active Substance: ATORVASTATIN CALCIUM
  5. PLAVIX [Concomitant]
     Active Substance: CLOPIDOGREL BISULFATE
  6. FARXIGA [Concomitant]
     Active Substance: DAPAGLIFLOZIN PROPANEDIOL
  7. DUONEB [Concomitant]
     Active Substance: ALBUTEROL SULFATE\IPRATROPIUM BROMIDE
  8. LANTUS [Concomitant]
     Active Substance: INSULIN GLARGINE
  9. NITROSTAT [Concomitant]
     Active Substance: NITROGLYCERIN
  10. NOVOLOG [Concomitant]
     Active Substance: INSULIN ASPART
  11. OMEPRAZOLE [Concomitant]
     Active Substance: OMEPRAZOLE
  12. ALDACTONE [Concomitant]
     Active Substance: SPIRONOLACTONE
  13. ASPIRIN [Concomitant]
     Active Substance: ASPIRIN
  14. VITAMIN B12 [Concomitant]
     Active Substance: CYANOCOBALAMIN
  15. VITAMIN D2 [Concomitant]
     Active Substance: ERGOCALCIFEROL
  16. COZAAR [Concomitant]
     Active Substance: LOSARTAN POTASSIUM
  17. ANTIVERT [Concomitant]
     Active Substance: MECLIZINE HYDROCHLORIDE
  18. GLUCOPHAGE [Concomitant]
     Active Substance: METFORMIN HYDROCHLORIDE
  19. TOPROL XL [Concomitant]
     Active Substance: METOPROLOL SUCCINATE

REACTIONS (17)
  - Pneumonia [Unknown]
  - Lung disorder [Unknown]
  - Off label use [Unknown]
  - Nausea [Unknown]
  - Vomiting [Unknown]
  - Diarrhoea [Unknown]
  - Insomnia [Unknown]
  - Dizziness [Unknown]
  - Disease progression [Unknown]
  - Chest pain [Unknown]
  - Bradycardia [Unknown]
  - Rales [Unknown]
  - Vasculitis [Unknown]
  - Hypersensitivity pneumonitis [Unknown]
  - Antinuclear antibody positive [Unknown]
  - C-reactive protein increased [Unknown]
  - Antineutrophil cytoplasmic antibody increased [Unknown]

NARRATIVE: CASE EVENT DATE: 20241201
